FAERS Safety Report 7448283-8 (Version None)
Quarter: 2011Q2

REPORT INFORMATION
  Report Type: 
  Country: None (occurrence: None)
  Receive Date: 20110429
  Receipt Date: 20110418
  Transmission Date: 20111010
  Serious: No
  Sender: FDA-Public Use
  Company Number: US-B.I. PHARMACEUTICALS,INC./RIDGEFIELD-2011-BP-11143BP

PATIENT
  Sex: Female

DRUGS (3)
  1. M.V.I. [Concomitant]
     Indication: PROPHYLAXIS
  2. MIACALCIN [Concomitant]
     Indication: OSTEOPENIA
  3. ZANTAC 75 [Suspect]
     Indication: GASTROOESOPHAGEAL REFLUX DISEASE
     Dosage: 75 MG
     Dates: start: 20101201

REACTIONS (1)
  - ALOPECIA [None]
